FAERS Safety Report 16465593 (Version 1)
Quarter: 2019Q2

REPORT INFORMATION
  Report Type: Spontaneous
  Country: CN (occurrence: CN)
  Receive Date: 20190621
  Receipt Date: 20190621
  Transmission Date: 20190711
  Serious: Yes (Hospitalization, Other)
  Sender: FDA-Public Use
  Company Number: CN-009507513-1906CHN005907

PATIENT
  Age: 86 Year
  Sex: Male

DRUGS (1)
  1. ZOCOR [Suspect]
     Active Substance: SIMVASTATIN
     Indication: LIPIDS INCREASED
     Dosage: 20 MILLIGRAM, QD
     Route: 048
     Dates: start: 20190315, end: 20190515

REACTIONS (4)
  - Hypertension [Unknown]
  - Myalgia [Recovering/Resolving]
  - Myocardial necrosis marker increased [Recovering/Resolving]
  - Hepatic function abnormal [Recovering/Resolving]

NARRATIVE: CASE EVENT DATE: 2019
